FAERS Safety Report 6306099-X (Version None)
Quarter: 2009Q3

REPORT INFORMATION
  Report Type: 
  Country: None (occurrence: None)
  Receive Date: 20090812
  Receipt Date: 20090805
  Transmission Date: 20100115
  Serious: Yes (Other)
  Sender: FDA-Public Use
  Company Number: US-WYE-H10485009

PATIENT
  Sex: Female

DRUGS (1)
  1. PREPARATION H [Suspect]
     Indication: DRUG USE FOR UNKNOWN INDICATION
     Dosage: UNKNOWN
     Route: 065

REACTIONS (3)
  - ACCIDENTAL EXPOSURE [None]
  - CEREBROVASCULAR ACCIDENT [None]
  - PUPILLARY DISORDER [None]
